FAERS Safety Report 6633203-6 (Version None)
Quarter: 2010Q1

REPORT INFORMATION
  Report Type: 
  Country: None (occurrence: None)
  Receive Date: 20100312
  Receipt Date: 20100308
  Transmission Date: 20100710
  Serious: Yes (Death, Hospitalization, Other)
  Sender: FDA-Public Use
  Company Number: PHHY2010US13828

PATIENT
  Age: 55 Year
  Sex: Male

DRUGS (7)
  1. CYCLOSPORINE [Suspect]
     Indication: CORD BLOOD TRANSPLANT THERAPY
     Dosage: UNK
     Dates: start: 20080101
  2. CYCLOSPORINE [Suspect]
     Indication: PROPHYLAXIS AGAINST GRAFT VERSUS HOST DISEASE
  3. MYCOPHENOLATE MOFETIL [Suspect]
     Indication: CORD BLOOD TRANSPLANT THERAPY
     Dosage: UNK
     Dates: start: 20080101
  4. MYCOPHENOLATE MOFETIL [Suspect]
     Indication: PROPHYLAXIS AGAINST GRAFT VERSUS HOST DISEASE
  5. IMMU-G [Concomitant]
     Indication: PROPHYLAXIS AGAINST GRAFT VERSUS HOST DISEASE
     Dosage: 500 MG/ KG
     Route: 042
  6. BUSULFEX [Concomitant]
     Indication: CORD BLOOD TRANSPLANT THERAPY
  7. ANTITHYMOCYTE IMMUNOGLOBULIN [Concomitant]
     Indication: CORD BLOOD TRANSPLANT THERAPY

REACTIONS (8)
  - ACUTE GRAFT VERSUS HOST DISEASE IN INTESTINE [None]
  - CEREBRAL INFARCTION [None]
  - CYTOMEGALOVIRUS VIRAEMIA [None]
  - ENCEPHALITIS CYTOMEGALOVIRUS [None]
  - LETHARGY [None]
  - NEPHROPATHY TOXIC [None]
  - NEUROLOGICAL DECOMPENSATION [None]
  - WEIGHT DECREASED [None]
